FAERS Safety Report 21885820 (Version 4)
Quarter: 2023Q2

REPORT INFORMATION
  Report Type: Report from Study
  Country: DE (occurrence: DE)
  Receive Date: 20230119
  Receipt Date: 20230519
  Transmission Date: 20230722
  Serious: Yes (Death, Hospitalization, Other)
  Sender: FDA-Public Use
  Company Number: DE-BRISTOL-MYERS SQUIBB COMPANY-2022-145179

PATIENT
  Age: 58 Year
  Sex: Male

DRUGS (8)
  1. METHOTREXATE [Suspect]
     Active Substance: METHOTREXATE
     Indication: Rheumatoid arthritis
     Dosage: 15 MILLIGRAM, QW
     Route: 065
     Dates: end: 202202
  2. METHOTREXATE [Suspect]
     Active Substance: METHOTREXATE
     Dosage: 20 MILLIGRAM
     Route: 065
  3. OLUMIANT [Suspect]
     Active Substance: BARICITINIB
     Indication: Rheumatoid arthritis
     Dosage: 4 MILLIGRAM
     Route: 065
     Dates: start: 201705, end: 201805
  4. OLUMIANT [Suspect]
     Active Substance: BARICITINIB
     Dosage: 4 MILLIGRAM, QD
     Route: 065
     Dates: start: 201806, end: 20220126
  5. ORENCIA [Suspect]
     Active Substance: ABATACEPT
     Indication: Rheumatoid arthritis
     Dosage: 1000 MILLIGRAM, Q28D
     Route: 042
     Dates: start: 20220127
  6. TOCILIZUMAB [Suspect]
     Active Substance: TOCILIZUMAB
     Indication: Rheumatoid arthritis
     Dosage: 800 MILLIGRAM
     Route: 065
     Dates: start: 201701, end: 201705
  7. ABATACEPT [Suspect]
     Active Substance: ABATACEPT
     Indication: Rheumatoid arthritis
     Dosage: 125 MILLIGRAM
     Route: 065
     Dates: start: 201601
  8. ABATACEPT [Suspect]
     Active Substance: ABATACEPT
     Dosage: 1000 MILLIGRAM
     Route: 065
     Dates: start: 201612

REACTIONS (10)
  - Cardiogenic shock [Fatal]
  - Multiple organ dysfunction syndrome [Fatal]
  - Cardiac failure [Fatal]
  - Pneumocystis jirovecii pneumonia [Fatal]
  - Sepsis [Fatal]
  - Pulmonary fibrosis [Unknown]
  - Acute kidney injury [Unknown]
  - Anaemia [Unknown]
  - Bursitis [Unknown]
  - Gastroenteritis [Unknown]

NARRATIVE: CASE EVENT DATE: 20220205
